FAERS Safety Report 12656796 (Version 2)
Quarter: 2016Q4

REPORT INFORMATION
  Report Type: Spontaneous
  Country: US (occurrence: US)
  Receive Date: 20160816
  Receipt Date: 20161021
  Transmission Date: 20170207
  Serious: No
  Sender: FDA-Public Use
  Company Number: US-GILEAD-2016-0227761

PATIENT
  Age: 22 Year
  Sex: Female
  Weight: 54 kg

DRUGS (5)
  1. HARVONI [Suspect]
     Active Substance: LEDIPASVIR\SOFOSBUVIR
     Indication: HEPATITIS C
     Dosage: 1 DF, UNK
     Route: 048
     Dates: start: 20160729, end: 20160921
  2. ONE A DAY WOMEN^S [Concomitant]
     Active Substance: MINERALS\VITAMINS
     Route: 048
  3. IBUPROFEN. [Concomitant]
     Active Substance: IBUPROFEN
     Route: 065
  4. IRON [Concomitant]
     Active Substance: IRON
     Dosage: UNK
     Route: 048
  5. VIT B 12 [Concomitant]
     Dosage: 500 MG, UNK
     Route: 048
     Dates: start: 2012

REACTIONS (2)
  - Skin ulcer [Unknown]
  - Alopecia [Not Recovered/Not Resolved]

NARRATIVE: CASE EVENT DATE: 20160808
